FAERS Safety Report 9616992 (Version 1)
Quarter: 2013Q4

REPORT INFORMATION
  Report Type: Spontaneous
  Country: DE (occurrence: DE)
  Receive Date: 20131011
  Receipt Date: 20131011
  Transmission Date: 20140711
  Serious: Yes (Death, Hospitalization)
  Sender: FDA-Public Use
  Company Number: DE-AMGEN-DEUSP2013070492

PATIENT
  Age: 81 Year
  Sex: Female

DRUGS (9)
  1. XGEVA [Suspect]
     Indication: BREAST CANCER METASTATIC
     Dosage: 120 MG, Q4WK
     Route: 058
     Dates: start: 201201, end: 20130718
  2. TRASTUZUMAB EMTANSINE [Suspect]
     Indication: BREAST CANCER METASTATIC
     Dosage: 3.6 MG, Q3WK
     Route: 042
     Dates: start: 20130712, end: 20130823
  3. RAMIPRIL [Concomitant]
     Dosage: 2.5 MG, UNK
     Route: 048
  4. PANTOPRAZOL [Concomitant]
     Dosage: 40 MG, UNK
     Route: 048
  5. NIFEDIPINE [Concomitant]
     Dosage: 20 MG, UNK
     Route: 048
  6. ATENOLOL [Concomitant]
     Dosage: 25 MG, UNK
     Route: 048
  7. XIPAMIDE [Concomitant]
     Dosage: 10 MG, UNK
     Route: 048
  8. ACTRAPID                           /00646001/ [Concomitant]
  9. PROTAPHANE [Concomitant]

REACTIONS (2)
  - Fatigue [Fatal]
  - Anaemia [Recovering/Resolving]
